FAERS Safety Report 5323574-5 (Version None)
Quarter: 2007Q3

REPORT INFORMATION
  Report Type: 
  Country: None (occurrence: None)
  Receive Date: 20070509
  Receipt Date: 20070509
  Transmission Date: 20080115
  Serious: Yes (Other)
  Sender: FDA-Public Use
  Company Number: None

PATIENT
  Age: 15 Year
  Sex: Male
  Weight: 65.7716 kg

DRUGS (2)
  1. BUPROPION HCL [Suspect]
     Indication: DYSTHYMIC DISORDER
     Dosage: 150MG
     Dates: start: 20070117
  2. WELLBUTRIN XL [Suspect]

REACTIONS (3)
  - ABDOMINAL DISCOMFORT [None]
  - APPETITE DISORDER [None]
  - PHARMACEUTICAL PRODUCT COMPLAINT [None]
